FAERS Safety Report 15149972 (Version 1)
Quarter: 2018Q3

REPORT INFORMATION
  Report Type: Spontaneous
  Country: SE (occurrence: SE)
  Receive Date: 20180716
  Receipt Date: 20180716
  Transmission Date: 20181010
  Serious: Yes (Death, Life-Threatening, Other)
  Sender: FDA-Public Use
  Company Number: SE-PFIZER INC-2018281143

PATIENT
  Age: 71 Year
  Sex: Female
  Weight: 72 kg

DRUGS (10)
  1. ZOLEDRONIC ACID [Concomitant]
     Active Substance: ZOLEDRONIC ACID
  2. BETAMETASONE DOC [Interacting]
     Active Substance: BETAMETHASONE SODIUM PHOSPHATE
     Indication: SPINAL CORD COMPRESSION
     Dosage: 4 MG, DAILY
     Route: 002
     Dates: start: 20180504
  3. FASLODEX [Concomitant]
     Active Substance: FULVESTRANT
  4. OXYCONTIN [Concomitant]
     Active Substance: OXYCODONE HYDROCHLORIDE
  5. OLSALAZIN [Concomitant]
  6. LOSARTAN. [Concomitant]
     Active Substance: LOSARTAN
     Indication: HYPERTENSION
  7. BETAMETASONE DOC [Interacting]
     Active Substance: BETAMETHASONE SODIUM PHOSPHATE
     Indication: METASTASIS
  8. IBRANCE [Suspect]
     Active Substance: PALBOCICLIB
     Indication: BREAST CANCER STAGE IV
     Dosage: 125 MG, DAILY
     Route: 002
     Dates: start: 20180605
  9. NYSTATIN/ZINC OXIDE [Concomitant]
     Indication: ORAL CANDIDIASIS
     Dosage: UNK
     Dates: start: 20180608
  10. LYRICA [Concomitant]
     Active Substance: PREGABALIN

REACTIONS (5)
  - Sepsis [Fatal]
  - Pericardial effusion [None]
  - Staphylococcus test positive [None]
  - Drug interaction [Unknown]
  - Neutropenia [Recovered/Resolved]

NARRATIVE: CASE EVENT DATE: 20180612
